FAERS Safety Report 7255032-5 (Version None)
Quarter: 2011Q1

REPORT INFORMATION
  Report Type: 
  Country: None (occurrence: None)
  Receive Date: 20110129
  Receipt Date: 20100317
  Transmission Date: 20110831
  Serious: No
  Sender: FDA-Public Use
  Company Number: US-ABBOTT-10P-163-0632806-00

PATIENT
  Sex: Female

DRUGS (1)
  1. HUMIRA [Suspect]
     Indication: CROHN'S DISEASE
     Dates: start: 20100303

REACTIONS (4)
  - NAUSEA [None]
  - INCREASED TENDENCY TO BRUISE [None]
  - HEADACHE [None]
  - PHOTOPHOBIA [None]
